FAERS Safety Report 8242307-6 (Version None)
Quarter: 2012Q1

REPORT INFORMATION
  Report Type: 
  Country: None (occurrence: None)
  Receive Date: 20120329
  Receipt Date: 20120326
  Transmission Date: 20120608
  Serious: Yes (Death)
  Sender: FDA-Public Use
  Company Number: US-PFIZER INC-2012077680

PATIENT
  Sex: Male
  Weight: 90.7 kg

DRUGS (4)
  1. XALKORI [Suspect]
     Dosage: UNK
     Dates: start: 20120222, end: 20120228
  2. XALKORI [Suspect]
     Indication: LUNG NEOPLASM MALIGNANT
     Dosage: UNK
     Dates: start: 20120214, end: 20120220
  3. XALKORI [Suspect]
     Dosage: UNK
     Dates: start: 20120309
  4. XALKORI [Suspect]
     Dosage: UNK
     Dates: start: 20120229, end: 20120303

REACTIONS (6)
  - DISEASE PROGRESSION [None]
  - WEIGHT DECREASED [None]
  - DECREASED APPETITE [None]
  - DRUG DOSE OMISSION [None]
  - NON-SMALL CELL LUNG CANCER METASTATIC [None]
  - RASH GENERALISED [None]
